FAERS Safety Report 6386448-7 (Version None)
Quarter: 2009Q4

REPORT INFORMATION
  Report Type: 
  Country: None (occurrence: None)
  Receive Date: 20091002
  Receipt Date: 20090506
  Transmission Date: 20100525
  Serious: No
  Sender: FDA-Public Use
  Company Number: US-ASTRAZENECA-2009UW11580

PATIENT
  Age: 46 Year
  Sex: Female

DRUGS (3)
  1. ARIMIDEX [Suspect]
     Indication: BREAST CANCER
     Route: 048
     Dates: start: 20060101
  2. ZOLOFT [Concomitant]
  3. AMBIEN [Concomitant]

REACTIONS (3)
  - INFLUENZA LIKE ILLNESS [None]
  - NAUSEA [None]
  - VOMITING [None]
